FAERS Safety Report 4873692-0 (Version None)
Quarter: 2006Q1

REPORT INFORMATION
  Report Type: 
  Country: None (occurrence: None)
  Receive Date: 20060104
  Receipt Date: 20060104
  Transmission Date: 20060701
  Serious: Yes (Life-Threatening, Hospitalization)
  Sender: FDA-Public Use
  Company Number: None

PATIENT
  Age: 37 Year
  Sex: Female
  Weight: 85.5 kg

DRUGS (4)
  1. COCAINE [Suspect]
     Dosage: X1
     Dates: start: 20041225, end: 20041225
  2. LORTAB [Concomitant]
  3. XANAX [Concomitant]
  4. PERCOCET [Concomitant]

REACTIONS (4)
  - CARDIAC ENZYMES INCREASED [None]
  - DRUG ABUSER [None]
  - OVERDOSE [None]
  - RHABDOMYOLYSIS [None]
